FAERS Safety Report 11110134 (Version 3)
Quarter: 2015Q4

REPORT INFORMATION
  Report Type: Report from Study
  Country: IL (occurrence: IL)
  Receive Date: 20150513
  Receipt Date: 20151026
  Transmission Date: 20160304
  Serious: Yes (Hospitalization, Other)
  Sender: FDA-Public Use
  Company Number: PHHY2015IL054453

PATIENT
  Sex: Female

DRUGS (1)
  1. SANDOSTATIN LAR DEPOT [Suspect]
     Active Substance: OCTREOTIDE ACETATE
     Indication: CARCINOID TUMOUR
     Dosage: 30 MG, Q4W
     Route: 030
     Dates: start: 20140624

REACTIONS (6)
  - Second primary malignancy [Unknown]
  - Metastases to liver [Not Recovered/Not Resolved]
  - Gastrointestinal anastomotic leak [Recovering/Resolving]
  - Postoperative wound infection [Recovering/Resolving]
  - Adenocarcinoma of colon [Unknown]
  - Malignant neoplasm progression [Not Recovered/Not Resolved]
